FAERS Safety Report 8325543-X (Version None)
Quarter: 2012Q2

REPORT INFORMATION
  Report Type: 
  Country: None (occurrence: None)
  Receive Date: 20120427
  Receipt Date: 20120412
  Transmission Date: 20120825
  Serious: Yes (Death, Other)
  Sender: FDA-Public Use
  Company Number: 2011-390

PATIENT
  Age: 63 Year
  Sex: Male

DRUGS (1)
  1. FAZACLO ODT [Suspect]
     Dosage: 500 MG, QD, ORAL
     Route: 048
     Dates: start: 20100126, end: 20110812

REACTIONS (4)
  - OXYGEN SATURATION DECREASED [None]
  - ACUTE RESPIRATORY FAILURE [None]
  - AGRANULOCYTOSIS [None]
  - PYREXIA [None]
